FAERS Safety Report 11283038 (Version 2)
Quarter: 2015Q3

REPORT INFORMATION
  Report Type: Report from Study
  Country: BE (occurrence: BE)
  Receive Date: 20150716
  Receipt Date: 20150720
  Transmission Date: 20151125
  Serious: Yes (Hospitalization)
  Sender: FDA-Public Use
  Company Number: 2015SGN01024

PATIENT

DRUGS (8)
  1. FRAXIPARINE [Concomitant]
     Active Substance: NADROPARIN CALCIUM
     Indication: THROMBOSIS PROPHYLAXIS
     Dosage: 0.3 UNK, UNK
     Route: 065
  2. BRENTUXIMAB VEDOTIN [Suspect]
     Active Substance: BRENTUXIMAB VEDOTIN
     Indication: HODGKIN^S DISEASE
     Dosage: 75 MG, UNK
     Route: 065
     Dates: start: 20150603, end: 20150603
  3. CITALOPRAM [Concomitant]
     Active Substance: CITALOPRAM HYDROBROMIDE
     Indication: PROPHYLAXIS
     Dosage: 20 MG, UNK
     Route: 065
  4. VINBLASTINE [Suspect]
     Active Substance: VINBLASTINE
     Indication: HODGKIN^S DISEASE
     Dosage: 10.08 MG, UNK
     Route: 065
     Dates: start: 20150603, end: 20150603
  5. LITICAN                            /00690801/ [Concomitant]
     Indication: NAUSEA
     Dosage: 50 MG, UNK
     Route: 065
  6. ALLOPURINOL. [Concomitant]
     Active Substance: ALLOPURINOL
     Indication: PROPHYLAXIS
     Dosage: 300 MG, UNK
     Route: 065
  7. DOXORUBICIN [Suspect]
     Active Substance: DOXORUBICIN
     Indication: HODGKIN^S DISEASE
     Dosage: 42 MG, UNK
     Route: 065
     Dates: start: 20150603, end: 20150603
  8. DACARBAZINE. [Suspect]
     Active Substance: DACARBAZINE
     Indication: HODGKIN^S DISEASE
     Dosage: 630 MG, UNK
     Route: 065
     Dates: start: 20150603, end: 20150603

REACTIONS (1)
  - Irritable bowel syndrome [Recovered/Resolved with Sequelae]

NARRATIVE: CASE EVENT DATE: 20150607
